FAERS Safety Report 8434888-4 (Version None)
Quarter: 2012Q2

REPORT INFORMATION
  Report Type: 
  Country: None (occurrence: None)
  Receive Date: 20120611
  Receipt Date: 20120611
  Transmission Date: 20120825
  Serious: No
  Sender: FDA-Public Use
  Company Number: None

PATIENT
  Sex: Male
  Weight: 95 kg

DRUGS (1)
  1. INTRON A [Suspect]
     Dosage: 994 MU
     Dates: end: 20110923

REACTIONS (2)
  - WHITE BLOOD CELL COUNT ABNORMAL [None]
  - LYMPHOCYTE COUNT ABNORMAL [None]
